FAERS Safety Report 9797132 (Version 2)
Quarter: 2014Q3

REPORT INFORMATION
  Report Type: Spontaneous
  Country: CN (occurrence: CN)
  Receive Date: 20140106
  Receipt Date: 20140721
  Transmission Date: 20150326
  Serious: Yes (Other)
  Sender: FDA-Public Use
  Company Number: PHHY2013CN154019

PATIENT
  Age: 0 Day
  Sex: Female

DRUGS (1)
  1. EXFORGE [Suspect]
     Active Substance: AMLODIPINE BESYLATE\VALSARTAN
     Dosage: (FETAL DRUG EXPOSURE VIA FATHER)
     Route: 065

REACTIONS (2)
  - Foetal macrosomia [Unknown]
  - Exposure via father [Unknown]

NARRATIVE: CASE EVENT DATE: 20131108
